FAERS Safety Report 4853016-5 (Version None)
Quarter: 2005Q4

REPORT INFORMATION
  Report Type: 
  Country: None (occurrence: None)
  Receive Date: 20051212
  Receipt Date: 20051123
  Transmission Date: 20060501
  Serious: Yes (Hospitalization)
  Sender: FDA-Public Use
  Company Number: US200511002955

PATIENT
  Age: 75 Year
  Sex: Female

DRUGS (6)
  1. HUMULIN 70/30 [Suspect]
     Indication: DIABETES MELLITUS NON-INSULIN-DEPENDENT
     Dosage: AS NEEDED,
     Dates: start: 19950101
  2. ZOCOR [Concomitant]
  3. PRIMAVON (SULFAMETHOXAZOLE, TRIMETHOPRIM) [Concomitant]
  4. ATENOLOL [Concomitant]
  5. PENTOXIFYLLINE [Concomitant]
  6. ASPIRIN [Concomitant]

REACTIONS (13)
  - BLOOD GLUCOSE INCREASED [None]
  - FEAR [None]
  - INTERVERTEBRAL DISC DEGENERATION [None]
  - MALAISE [None]
  - MEMORY IMPAIRMENT [None]
  - POOR PERIPHERAL CIRCULATION [None]
  - PROCEDURAL PAIN [None]
  - SPINAL CORD COMPRESSION [None]
  - SPINAL OSTEOARTHRITIS [None]
  - SPONDYLITIS [None]
  - THYROID DISORDER [None]
  - VASCULAR BYPASS GRAFT [None]
  - VASCULAR STENT INSERTION [None]
